FAERS Safety Report 5777421-8 (Version None)
Quarter: 2008Q2

REPORT INFORMATION
  Report Type: 
  Country: None (occurrence: None)
  Receive Date: 20080616
  Receipt Date: 20080430
  Transmission Date: 20081010
  Serious: No
  Sender: FDA-Public Use
  Company Number: ADE# 08-059

PATIENT
  Sex: Male
  Weight: 87.5442 kg

DRUGS (2)
  1. MIRTAZAPINE [Suspect]
     Indication: DEPRESSION
     Dosage: 1 TABLET AT NIGHT
     Dates: start: 20080331, end: 20080411
  2. MIRTAZAPINE [Suspect]
     Indication: INSOMNIA
     Dosage: 1 TABLET AT NIGHT
     Dates: start: 20080331, end: 20080411

REACTIONS (11)
  - ABNORMAL SLEEP-RELATED EVENT [None]
  - AMNESIA [None]
  - HYPERAESTHESIA [None]
  - HYPOAESTHESIA [None]
  - NERVE INJURY [None]
  - NERVOUS SYSTEM DISORDER [None]
  - SMOKER [None]
  - SOMNAMBULISM [None]
  - SOMNOLENCE [None]
  - SUNBURN [None]
  - THERAPEUTIC AGENT TOXICITY [None]
